FAERS Safety Report 10870354 (Version 4)
Quarter: 2015Q3

REPORT INFORMATION
  Report Type: Spontaneous
  Country: PL (occurrence: PL)
  Receive Date: 20150226
  Receipt Date: 20150701
  Transmission Date: 20151125
  Serious: Yes (Hospitalization, Other)
  Sender: FDA-Public Use
  Company Number: PL-PFIZER INC-2015066099

PATIENT
  Age: 77 Year
  Sex: Male
  Weight: 70 kg

DRUGS (10)
  1. APO-DOXAN [Concomitant]
     Dosage: UNK, 1X/DAY
  2. TRAMAL [Concomitant]
     Active Substance: TRAMADOL
     Dosage: 2X100
  3. LYRICA [Suspect]
     Active Substance: PREGABALIN
     Dosage: 150 MG, DAILY (BEFORE NIGHT)
     Route: 048
     Dates: start: 20141217, end: 20150202
  4. FURAGIN [Concomitant]
     Dosage: UNK, 3X/DAY
  5. DIUVER [Concomitant]
     Active Substance: TORSEMIDE
     Dosage: 1X1/2 (5MG)
  6. EUTHYROX N [Concomitant]
     Dosage: 25 ?G, 1X/DAY
  7. PROTEVASC [Concomitant]
     Active Substance: TRIMETAZIDINE DIHYDROCHLORIDE
     Dosage: UNK, 2X/DAY
  8. LYRICA [Suspect]
     Active Substance: PREGABALIN
     Indication: NEURALGIA
     Dosage: 75 MG, DAILY
     Route: 048
     Dates: start: 20140908
  9. POLFILIN [Concomitant]
     Dosage: 400 MG, 1X/DAY
     Dates: start: 20150130
  10. TRAMAL RETARD [Concomitant]
     Active Substance: TRAMADOL
     Dosage: 150, 2X/DAY

REACTIONS (2)
  - Paresis [Recovered/Resolved]
  - Gait disturbance [Recovered/Resolved]

NARRATIVE: CASE EVENT DATE: 20150129
